FAERS Safety Report 4359897-6 (Version None)
Quarter: 2004Q2

REPORT INFORMATION
  Report Type: 
  Country: None (occurrence: None)
  Receive Date: 20040518
  Receipt Date: 20040511
  Transmission Date: 20050107
  Serious: Yes (Hospitalization)
  Sender: FDA-Public Use
  Company Number: US-ROCHE-367535

PATIENT
  Age: 40 Year
  Sex: Male

DRUGS (5)
  1. FUZEON [Suspect]
     Indication: HIV INFECTION
     Route: 058
     Dates: end: 20040511
  2. VIDEX [Concomitant]
     Dates: end: 20040511
  3. CELEXA [Concomitant]
     Dates: end: 20040511
  4. ANTIRETROVIRAL NOS [Concomitant]
     Indication: HIV INFECTION
     Route: 010
     Dates: end: 20040511
  5. DIFLUCAN [Concomitant]
     Dates: end: 20040511

REACTIONS (2)
  - CEREBROVASCULAR ACCIDENT [None]
  - PNEUMOCYSTIS CARINII PNEUMONIA [None]
